FAERS Safety Report 22063771 (Version 3)
Quarter: 2023Q1

REPORT INFORMATION
  Report Type: Spontaneous
  Country: CZ (occurrence: CZ)
  Receive Date: 20230306
  Receipt Date: 20230325
  Transmission Date: 20230418
  Serious: Yes (Hospitalization)
  Sender: FDA-Public Use
  Company Number: CZ-Accord-302633

PATIENT
  Age: 66 Year
  Sex: Female
  Weight: 66 kg

DRUGS (41)
  1. GEMCITABINE [Suspect]
     Active Substance: GEMCITABINE
     Indication: Diffuse large B-cell lymphoma stage II
     Dosage: 1Q2W
     Route: 042
     Dates: start: 20230103
  2. OXALIPLATIN [Suspect]
     Active Substance: OXALIPLATIN
     Indication: Diffuse large B-cell lymphoma stage II
     Dosage: 1Q2W
     Route: 042
     Dates: start: 20230103
  3. EPCORITAMAB [Suspect]
     Active Substance: EPCORITAMAB
     Indication: Diffuse large B-cell lymphoma stage II
     Dosage: PRIMING DOSE, SINGLE
     Route: 058
     Dates: start: 20230103, end: 20230103
  4. ZYRTEC [Concomitant]
     Active Substance: CETIRIZINE HYDROCHLORIDE
     Indication: Premedication
     Dosage: 10 MG
     Route: 048
     Dates: start: 20230201, end: 20230201
  5. Paralen [Concomitant]
     Indication: Premedication
     Dosage: 1000 MG
     Route: 048
     Dates: start: 20230201, end: 20230201
  6. PREDNISONE [Concomitant]
     Active Substance: PREDNISONE
     Indication: Prophylaxis
     Dosage: 100 MG
     Route: 048
     Dates: start: 20230201, end: 20230201
  7. SOLU-MEDROL [Concomitant]
     Active Substance: METHYLPREDNISOLONE SODIUM SUCCINATE
     Indication: Prophylaxis
     Dosage: 80 MG
     Route: 042
     Dates: start: 20221227, end: 20221230
  8. ALOXI [Concomitant]
     Active Substance: PALONOSETRON HYDROCHLORIDE
     Dates: start: 20230118, end: 20230118
  9. AMOXICILLIN\CLAVULANATE POTASSIUM [Concomitant]
     Active Substance: AMOXICILLIN\CLAVULANATE POTASSIUM
     Dates: start: 20230123, end: 20230127
  10. VENLAFAXINE HYDROCHLORIDE [Concomitant]
     Active Substance: VENLAFAXINE HYDROCHLORIDE
     Dates: start: 2014
  11. BISEPTOL [Concomitant]
     Active Substance: SULFAMETHOXAZOLE\TRIMETHOPRIM
     Dates: start: 2022
  12. METOCLOPRAMIDE HYDROCHLORIDE [Concomitant]
     Active Substance: METOCLOPRAMIDE HYDROCHLORIDE
     Dates: start: 2022
  13. POTASSIUM CHLORIDE [Concomitant]
     Active Substance: POTASSIUM CHLORIDE
     Dates: start: 20230125, end: 20230201
  14. PANTOPRAZOLE SODIUM [Concomitant]
     Active Substance: PANTOPRAZOLE SODIUM
     Dates: start: 2022
  15. SODIUM CHLORIDE [Concomitant]
     Active Substance: SODIUM CHLORIDE
     Dates: start: 20230119, end: 20230123
  16. ACETAMINOPHEN [Concomitant]
     Active Substance: ACETAMINOPHEN
     Dates: start: 20230119, end: 20230120
  17. PIPERACILLIN SODIUM\TAZOBACTAM SODIUM [Concomitant]
     Active Substance: PIPERACILLIN SODIUM\TAZOBACTAM SODIUM
     Dates: start: 20230121, end: 20230123
  18. TAMIFLU [Concomitant]
     Active Substance: OSELTAMIVIR PHOSPHATE
     Dates: start: 20230120, end: 20230122
  19. FILGRASTIM [Concomitant]
     Active Substance: FILGRASTIM
     Dates: start: 20230110, end: 20230207
  20. GEMCITABINE [Suspect]
     Active Substance: GEMCITABINE
     Indication: Diffuse large B-cell lymphoma stage II
     Dosage: 1Q2W
     Route: 042
     Dates: start: 20230201
  21. OXALIPLATIN [Suspect]
     Active Substance: OXALIPLATIN
     Indication: Diffuse large B-cell lymphoma stage II
     Dosage: 1Q2W
     Route: 042
     Dates: start: 20230201
  22. EPCORITAMAB [Suspect]
     Active Substance: EPCORITAMAB
     Indication: Diffuse large B-cell lymphoma stage II
     Route: 058
     Dates: start: 20230201
  23. ZYRTEC [Concomitant]
     Active Substance: CETIRIZINE HYDROCHLORIDE
     Indication: Premedication
     Dosage: 10 MG
     Route: 048
     Dates: start: 20230103, end: 20230103
  24. ZYRTEC [Concomitant]
     Active Substance: CETIRIZINE HYDROCHLORIDE
     Indication: Premedication
     Dosage: 10 MG
     Route: 048
     Dates: start: 20230110, end: 20230110
  25. ZYRTEC [Concomitant]
     Active Substance: CETIRIZINE HYDROCHLORIDE
     Indication: Premedication
     Dosage: 10 MG
     Route: 048
     Dates: start: 20230118, end: 20230118
  26. ZYRTEC [Concomitant]
     Active Substance: CETIRIZINE HYDROCHLORIDE
     Indication: Premedication
     Dosage: 10 MG
     Route: 048
     Dates: start: 20230125, end: 20230125
  27. ZYRTEC [Concomitant]
     Active Substance: CETIRIZINE HYDROCHLORIDE
     Indication: Premedication
     Dosage: 10 MG
     Route: 048
     Dates: start: 20230209, end: 20230209
  28. PREDNISONE [Concomitant]
     Active Substance: PREDNISONE
     Indication: Prophylaxis
     Dosage: 100 MG
     Route: 048
     Dates: start: 20230209, end: 20230209
  29. PREDNISONE [Concomitant]
     Active Substance: PREDNISONE
     Indication: Prophylaxis
     Dosage: 100 MG
     Route: 048
     Dates: start: 20230103, end: 20230106
  30. PREDNISONE [Concomitant]
     Active Substance: PREDNISONE
     Indication: Prophylaxis
     Dosage: 100 MG
     Route: 048
     Dates: start: 20230118, end: 20230118
  31. PREDNISONE [Concomitant]
     Active Substance: PREDNISONE
     Indication: Prophylaxis
     Dosage: 100 MG
     Route: 048
     Dates: start: 20230125, end: 20230129
  32. PREDNISONE [Concomitant]
     Active Substance: PREDNISONE
     Indication: Prophylaxis
     Dosage: 60 MG
     Route: 048
     Dates: start: 20221231, end: 20230102
  33. EPCORITAMAB [Suspect]
     Active Substance: EPCORITAMAB
     Indication: Diffuse large B-cell lymphoma stage II
     Dosage: INTERMEDIATE DOSE, SINGLE
     Route: 058
     Dates: start: 20230110, end: 20230110
  34. EPCORITAMAB [Suspect]
     Active Substance: EPCORITAMAB
     Indication: Diffuse large B-cell lymphoma stage II
     Dosage: FULL DOSE, WEEKLY
     Route: 058
     Dates: start: 20230118
  35. EPCORITAMAB [Suspect]
     Active Substance: EPCORITAMAB
     Indication: Diffuse large B-cell lymphoma stage II
     Route: 058
     Dates: start: 20230209
  36. Paralen [Concomitant]
     Indication: Premedication
     Dosage: 1000 MG
     Route: 048
     Dates: start: 20230103, end: 20230103
  37. Paralen [Concomitant]
     Indication: Premedication
     Dosage: 1000 MG
     Route: 048
     Dates: start: 20230110, end: 20230110
  38. Paralen [Concomitant]
     Indication: Premedication
     Dosage: 1000 MG
     Route: 048
     Dates: start: 20230118, end: 20230118
  39. Paralen [Concomitant]
     Indication: Premedication
     Dosage: 1000 MG
     Route: 048
     Dates: start: 20230125, end: 20230125
  40. Paralen [Concomitant]
     Indication: Premedication
     Dosage: 1000 MG
     Route: 048
     Dates: start: 20230209, end: 20230209
  41. PREDNISONE [Concomitant]
     Active Substance: PREDNISONE
     Indication: Prophylaxis
     Dosage: 100 MG
     Route: 048
     Dates: start: 20230110, end: 20230113

REACTIONS (1)
  - Decreased appetite [Recovered/Resolved]

NARRATIVE: CASE EVENT DATE: 20230202
